FAERS Safety Report 26051630 (Version 1)
Quarter: 2025Q4

REPORT INFORMATION
  Report Type: Spontaneous
  Country: EU (occurrence: EU)
  Receive Date: 20251117
  Receipt Date: 20251117
  Transmission Date: 20260118
  Serious: Yes (Death)
  Sender: MERCK SHARP & DOHME LLC
  Company Number: EU-009507513-2350021

PATIENT
  Age: 75 Year

DRUGS (1)
  1. PEMBROLIZUMAB [Suspect]
     Active Substance: PEMBROLIZUMAB
     Indication: Non-small cell lung cancer stage II
     Dates: start: 2025, end: 2025

REACTIONS (2)
  - Pneumoperitoneum [Fatal]
  - Post procedural sepsis [Fatal]

NARRATIVE: CASE EVENT DATE: 20250101
